FAERS Safety Report 16063515 (Version 1)
Quarter: 2019Q1

REPORT INFORMATION
  Report Type: Spontaneous
  Country: IT (occurrence: IT)
  Receive Date: 20190312
  Receipt Date: 20190312
  Transmission Date: 20190418
  Serious: Yes (Other)
  Sender: FDA-Public Use
  Company Number: IT-TEVA-2019-IT-1021962

PATIENT
  Age: 63 Year
  Sex: Male

DRUGS (1)
  1. CEFAZOLINA TEVA 1 G POLVERE E SOLVENTE PER SOLUZIONE INIETTABILE E.V. [Suspect]
     Active Substance: CEFAZOLIN
     Indication: ANTIBIOTIC PROPHYLAXIS
     Route: 065
     Dates: start: 20190215, end: 20190215

REACTIONS (5)
  - Face oedema [Recovered/Resolved]
  - Eye movement disorder [Recovered/Resolved]
  - Swelling of eyelid [Recovered/Resolved]
  - Grimacing [Recovered/Resolved]
  - Conjunctival discolouration [Recovered/Resolved]

NARRATIVE: CASE EVENT DATE: 20190215
